FAERS Safety Report 8881617 (Version 3)
Quarter: 2012Q4

REPORT INFORMATION
  Report Type: Report from Study
  Country: US (occurrence: US)
  Receive Date: 20121101
  Receipt Date: 20121129
  Transmission Date: 20130627
  Serious: Yes (Disabling)
  Sender: FDA-Public Use
  Company Number: US-JNJFOC-20121016791

PATIENT
  Age: 15 None
  Sex: Male
  Weight: 42.4 kg

DRUGS (5)
  1. REMICADE [Suspect]
     Indication: INFLAMMATORY BOWEL DISEASE
     Route: 042
     Dates: start: 20101205
  2. REMICADE [Suspect]
     Indication: INFLAMMATORY BOWEL DISEASE
     Route: 042
     Dates: start: 20110830, end: 20111025
  3. IRON [Concomitant]
  4. MULTIVITAMINS [Concomitant]
  5. FLUOCINOLONE [Concomitant]

REACTIONS (2)
  - Crohn^s disease [Recovered/Resolved]
  - Drug specific antibody present [Recovered/Resolved]
